FAERS Safety Report 9781384 (Version 1)
Quarter: 2013Q4

REPORT INFORMATION
  Report Type: Spontaneous
  Country: US (occurrence: None)
  Receive Date: 20131223
  Receipt Date: 20131223
  Transmission Date: 20140711
  Serious: No
  Sender: FDA-Public Use
  Company Number: None

PATIENT
  Age: 9 Year
  Sex: Female
  Weight: 37.3 kg

DRUGS (4)
  1. REMICADE [Suspect]
     Indication: CROHN^S DISEASE
     Dosage: 200 MG, EVERY 8 WEEK , INTRAVENOUS
     Route: 042
     Dates: start: 20130717, end: 20131217
  2. ACETAMINOPHEN [Concomitant]
  3. DIPHENHYDRAMINE [Concomitant]
  4. METHYLPREDNISOLONE [Concomitant]

REACTIONS (1)
  - Infusion site pain [None]
